FAERS Safety Report 7568625-2 (Version None)
Quarter: 2011Q2

REPORT INFORMATION
  Report Type: 
  Country: None (occurrence: None)
  Receive Date: 20110623
  Receipt Date: 20110614
  Transmission Date: 20111010
  Serious: Yes (Other)
  Sender: FDA-Public Use
  Company Number: PHHY2011GB26125

PATIENT
  Age: 80 Year
  Sex: Male
  Weight: 91 kg

DRUGS (15)
  1. LEVOTHYROXINE SODIUM [Concomitant]
     Dosage: UNK
     Dates: start: 20110307
  2. LOSARTAN POTASSIUM [Concomitant]
     Dosage: UNK
     Dates: start: 20110110, end: 20110303
  3. LEVOTHYROXINE SODIUM [Concomitant]
     Dosage: UNK
     Dates: start: 20110110, end: 20110303
  4. LOSARTAN POTASSIUM [Concomitant]
     Dosage: UNK
     Dates: start: 20101206, end: 20110103
  5. TAMSULOSIN HYDROCHLORIDE [Suspect]
     Indication: NOCTURIA
     Dosage: UNK
     Dates: start: 20110301
  6. ASPIRIN [Concomitant]
     Dosage: UNK
     Dates: start: 20101206, end: 20110103
  7. BISOPROLOL [Concomitant]
     Dosage: UNK
     Dates: start: 20101206, end: 20110103
  8. TAMSULOSIN HYDROCHLORIDE [Suspect]
     Indication: PROSTATOMEGALY
     Dosage: UNK
     Dates: start: 20110314
  9. FELODIPINE [Concomitant]
     Dosage: UNK
     Dates: start: 20110226, end: 20110101
  10. BISOPROLOL [Concomitant]
     Dosage: UNK
     Dates: start: 20110110, end: 20110303
  11. ASPIRIN [Concomitant]
     Dosage: UNK
     Dates: start: 20110110, end: 20110303
  12. LEVOTHYROXINE SODIUM [Concomitant]
     Dosage: UNK
     Dates: start: 20101206, end: 20110103
  13. ASPIRIN [Concomitant]
     Dosage: UNK
     Dates: start: 20110307
  14. BISOPROLOL [Concomitant]
     Dosage: UNK
     Dates: start: 20110307
  15. LOSARTAN POTASSIUM [Concomitant]
     Dosage: UNK
     Dates: start: 20110307

REACTIONS (2)
  - URINARY INCONTINENCE [None]
  - LOSS OF BLADDER SENSATION [None]
